FAERS Safety Report 19510858 (Version 2)
Quarter: 2021Q3

REPORT INFORMATION
  Report Type: Spontaneous
  Country: HU (occurrence: HU)
  Receive Date: 20210709
  Receipt Date: 20210729
  Transmission Date: 20211014
  Serious: Yes (Hospitalization, Other)
  Sender: FDA-Public Use
  Company Number: HU-GLAXOSMITHKLINE-HU2020075276

PATIENT
  Age: 3 Year
  Sex: Female
  Weight: 20 kg

DRUGS (6)
  1. ALGOZONE [Suspect]
     Active Substance: METAMIZOLE SODIUM
     Indication: PYREXIA
     Dosage: 1 DF (3.8 DROPS SOLUTION)
     Route: 065
  2. ALGOZONE [Suspect]
     Active Substance: METAMIZOLE SODIUM
     Indication: PNEUMONIA MYCOPLASMAL
  3. IBUPROFEN. [Suspect]
     Active Substance: IBUPROFEN
     Indication: PNEUMONIA MYCOPLASMAL
     Dosage: UNK, SUPPOSITORIES
     Route: 065
  4. IBUPROFEN. [Suspect]
     Active Substance: IBUPROFEN
     Indication: PYREXIA
  5. CEFUROXIM [Suspect]
     Active Substance: CEFUROXIME
     Indication: PNEUMONIA MYCOPLASMAL
     Dosage: UNK
     Route: 065
  6. CEFUROXIM [Suspect]
     Active Substance: CEFUROXIME
     Indication: PYREXIA

REACTIONS (2)
  - Product use issue [Unknown]
  - Stevens-Johnson syndrome [Recovered/Resolved]
